FAERS Safety Report 10636314 (Version 1)
Quarter: 2014Q4

REPORT INFORMATION
  Report Type: Spontaneous
  Country: US (occurrence: US)
  Receive Date: 20141206
  Receipt Date: 20141206
  Transmission Date: 20150529
  Serious: No
  Sender: FDA-Public Use
  Company Number: US-009507513-1412USA002893

PATIENT
  Age: 68 Year
  Sex: Male

DRUGS (1)
  1. VYTORIN [Suspect]
     Active Substance: EZETIMIBE\SIMVASTATIN
     Indication: MYOCARDIAL INFARCTION
     Dosage: 10/40 MG ONCE A DAY IN TNE EVENING
     Route: 048
     Dates: start: 2005

REACTIONS (2)
  - Product quality issue [Unknown]
  - Dysphagia [Unknown]

NARRATIVE: CASE EVENT DATE: 20141201
